FAERS Safety Report 4928926-0 (Version None)
Quarter: 2006Q1

REPORT INFORMATION
  Report Type: 
  Country: None (occurrence: None)
  Receive Date: 20060301
  Receipt Date: 20060217
  Transmission Date: 20060701
  Serious: Yes (Hospitalization)
  Sender: FDA-Public Use
  Company Number: FR-JNJFOC-20060206266

PATIENT
  Age: 92 Year
  Sex: Female

DRUGS (7)
  1. TOPALGIC [Suspect]
     Indication: PAIN IN EXTREMITY
     Route: 042
  2. TEMESTA [Suspect]
     Indication: ANXIETY
  3. CIFLOX [Suspect]
     Indication: PROPHYLAXIS
     Route: 048
  4. TIENAM [Suspect]
     Route: 042
  5. TIENAM [Suspect]
     Indication: PROPHYLAXIS
     Route: 042
  6. ZOLOFT [Suspect]
     Indication: DYSTHYMIC DISORDER
     Route: 048
  7. NEURONTIN [Suspect]
     Indication: EPILEPSY
     Route: 048

REACTIONS (1)
  - MYOCLONUS [None]
